FAERS Safety Report 6992188-3 (Version None)
Quarter: 2010Q3

REPORT INFORMATION
  Report Type: 
  Country: None (occurrence: None)
  Receive Date: 20100915
  Receipt Date: 20100830
  Transmission Date: 20110219
  Serious: Yes (Hospitalization)
  Sender: FDA-Public Use
  Company Number: 2010MA002376

PATIENT
  Age: 84 Year
  Sex: Male

DRUGS (5)
  1. CITALOPRAM HYDROBROMIDE TABLETS, 10 MG (PUREPAC) (CITALOPRAM HYDROBROM [Suspect]
     Indication: PRODUCT USED FOR UNKNOWN INDICATION
     Dosage: 10 MG; QD; PO
     Route: 048
     Dates: end: 20100711
  2. MEMANTINE HCL [Concomitant]
  3. OMEPRAZOLE [Concomitant]
  4. FINASTERIDE [Concomitant]
  5. METOPROLOL TARTRATE [Concomitant]

REACTIONS (4)
  - BALANCE DISORDER [None]
  - DIZZINESS [None]
  - GENERAL PHYSICAL HEALTH DETERIORATION [None]
  - HYPONATRAEMIA [None]
